FAERS Safety Report 5447367-3 (Version None)
Quarter: 2007Q3

REPORT INFORMATION
  Report Type: 
  Country: None (occurrence: None)
  Receive Date: 20070905
  Receipt Date: 20070816
  Transmission Date: 20080115
  Serious: Yes (Other)
  Sender: FDA-Public Use
  Company Number: SPV1-2007-03960

PATIENT
  Age: 53 Year
  Sex: Female

DRUGS (2)
  1. MIDODRINE HYDROCHLORIDE [Suspect]
     Indication: ORTHOSTATIC HYPERTENSION
  2. PERPHENAZINE (PERPHANAZINE) [Concomitant]

REACTIONS (2)
  - DRUG INTERACTION [None]
  - DYSTONIA [None]
